FAERS Safety Report 4635777-3 (Version None)
Quarter: 2005Q2

REPORT INFORMATION
  Report Type: 
  Country: None (occurrence: None)
  Receive Date: 20050414
  Receipt Date: 20050331
  Transmission Date: 20051028
  Serious: Yes (Other)
  Sender: FDA-Public Use
  Company Number: 2005055825

PATIENT
  Sex: 0

DRUGS (1)
  1. FLUCONAZOLE [Suspect]
     Indication: CRYPTOCOCCAL CUTANEOUS INFECTION
     Dosage: 400 MG, INTRAVENOUS
     Route: 042

REACTIONS (1)
  - DELIRIUM [None]
